FAERS Safety Report 17843784 (Version 1)
Quarter: 2020Q2

REPORT INFORMATION
  Report Type: Spontaneous
  Country: FR (occurrence: FR)
  Receive Date: 20200531
  Receipt Date: 20200531
  Transmission Date: 20200714
  Serious: Yes (Hospitalization)
  Sender: FDA-Public Use
  Company Number: FR-009507513-2005FRA008767

PATIENT
  Age: 76 Year
  Sex: Male

DRUGS (10)
  1. KEYTRUDA [Suspect]
     Active Substance: PEMBROLIZUMAB
     Indication: BLADDER CANCER
     Dosage: UNK
     Dates: start: 201901
  2. ESIDREX [Concomitant]
     Active Substance: HYDROCHLOROTHIAZIDE
     Dosage: 25 MILLIGRAM  (1 TABLET) IN THE MORNING
  3. ALLOPURINOL. [Concomitant]
     Active Substance: ALLOPURINOL
     Dosage: 100 MILLIGRAM, / 1 TABLET) IN THE MORNING
  4. LEVOTHYROX [Concomitant]
     Active Substance: LEVOTHYROXINE
     Dosage: 20 MICROGRAM, IN THE MORNING
  5. ZOPICLONE [Concomitant]
     Active Substance: ZOPICLONE
     Dosage: 1 TABLET IN THE EVENING, PRN
  6. SOTALOL. [Concomitant]
     Active Substance: SOTALOL
     Dosage: 160 MILLIGRAM (1 TABLET) IN THE MORNING
  7. DAFALGAN [Concomitant]
     Active Substance: ACETAMINOPHEN
     Dosage: 2 TABLET TID
     Dates: start: 201901
  8. KEYTRUDA [Suspect]
     Active Substance: PEMBROLIZUMAB
     Indication: BLADDER CANCER
     Dosage: UNK
     Dates: end: 201803
  9. KARDEGIC [Concomitant]
     Active Substance: ASPIRIN DL-LYSINE
     Dosage: 1 TABLET IN THE MORNING
  10. DAFALGAN [Concomitant]
     Active Substance: ACETAMINOPHEN
     Dosage: UNK
     Dates: end: 201803

REACTIONS (3)
  - Product use in unapproved indication [Unknown]
  - Confusional state [Recovered/Resolved with Sequelae]
  - Colitis [Unknown]

NARRATIVE: CASE EVENT DATE: 20190116
